FAERS Safety Report 9462581 (Version 2)
Quarter: 2013Q3

REPORT INFORMATION
  Report Type: Spontaneous
  Country: US (occurrence: US)
  Receive Date: 20130816
  Receipt Date: 20130823
  Transmission Date: 20140515
  Serious: Yes (Hospitalization, Other)
  Sender: FDA-Public Use
  Company Number: US-PFIZER INC-2013234453

PATIENT
  Age: 72 Year
  Sex: Male
  Weight: 70.5 kg

DRUGS (4)
  1. FLUCONAZOLE [Suspect]
     Indication: RESPIRATORY MONILIASIS
     Dosage: 200 MG, DAILY
     Route: 042
     Dates: start: 2013
  2. FLUCONAZOLE [Suspect]
     Dosage: 100 MG, 2X/DAY
     Route: 042
  3. PROTONIX [Suspect]
     Indication: GASTROOESOPHAGEAL REFLUX DISEASE
     Dosage: 40 MG, 1X/DAY
     Route: 042
     Dates: start: 20130810
  4. PRILOSEC [Suspect]
     Indication: GASTROOESOPHAGEAL REFLUX DISEASE
     Dosage: 20 MG, 2X/DAY
     Route: 065
     Dates: end: 20130810

REACTIONS (6)
  - Drug ineffective [Unknown]
  - Respiratory moniliasis [Unknown]
  - Respiratory failure [Unknown]
  - Bacteraemia [Unknown]
  - Fungaemia [Unknown]
  - Fungal test positive [Unknown]
